FAERS Safety Report 19375119 (Version 1)
Quarter: 2021Q2

REPORT INFORMATION
  Report Type: Spontaneous
  Country: US (occurrence: US)
  Receive Date: 20210604
  Receipt Date: 20210604
  Transmission Date: 20210717
  Serious: No
  Sender: FDA-Public Use
  Company Number: US-THERAPEUTICSMD-2021TMD01118

PATIENT
  Age: 33 Year
  Sex: Female
  Weight: 79.37 kg

DRUGS (8)
  1. ^VALSPAR^ [Concomitant]
  2. UNSPECIFIED ANTIDEPRESSANTS [Concomitant]
     Active Substance: UNSPECIFIED INGREDIENT
  3. MULTIVITAMINS [Concomitant]
     Active Substance: VITAMINS
  4. VYVANSE [Concomitant]
     Active Substance: LISDEXAMFETAMINE DIMESYLATE
  5. ANNOVERA [Suspect]
     Active Substance: ETHINYL ESTRADIOL\SEGESTERONE ACETATE
     Indication: HORMONE REPLACEMENT THERAPY
     Dosage: 1 RING, INSERT 21 DAYS, REMOVE 7 DAYS
     Route: 067
     Dates: start: 202011
  6. XYZAL [Concomitant]
     Active Substance: LEVOCETIRIZINE DIHYDROCHLORIDE
  7. UNSPECIFIED ANTIPSYCHOTICS [Concomitant]
     Active Substance: UNSPECIFIED INGREDIENT
  8. TRAZODONE [Concomitant]
     Active Substance: TRAZODONE HYDROCHLORIDE

REACTIONS (4)
  - Amenorrhoea [Unknown]
  - Vaginal discharge [Unknown]
  - Off label use [Not Recovered/Not Resolved]
  - Hypomenorrhoea [Unknown]

NARRATIVE: CASE EVENT DATE: 202011
